FAERS Safety Report 24377917 (Version 1)
Quarter: 2024Q3

REPORT INFORMATION
  Report Type: Spontaneous
  Country: US (occurrence: None)
  Receive Date: 20240927
  Receipt Date: 20240927
  Transmission Date: 20241017
  Serious: No
  Sender: Public
  Company Number: None

PATIENT
  Age: 55 Year
  Sex: Male
  Weight: 85 kg

DRUGS (1)
  1. LISINOPRIL [Suspect]
     Active Substance: LISINOPRIL
     Indication: Hypertension
     Dosage: 40.00 MG DAILY ORAL
     Route: 048
     Dates: start: 20220421, end: 20231013

REACTIONS (1)
  - Angioedema [None]

NARRATIVE: CASE EVENT DATE: 20231013
